FAERS Safety Report 5878639-6 (Version None)
Quarter: 2008Q3

REPORT INFORMATION
  Report Type: 
  Country: None (occurrence: None)
  Receive Date: 20080909
  Receipt Date: 20080826
  Transmission Date: 20090109
  Serious: Yes (Hospitalization, Other)
  Sender: FDA-Public Use
  Company Number: 100#08#2008-04383

PATIENT
  Age: 56 Year
  Sex: Female

DRUGS (4)
  1. METFORMIN HCL [Suspect]
     Indication: TYPE 2 DIABETES MELLITUS
     Dosage: 850 MG THREE  TIMES DAILY
  2. PIROXICAM [Suspect]
     Indication: ANALGESIA
     Dosage: 20 MG
  3. FUROSEMIDE [Suspect]
     Indication: HYPERTENSION
     Dosage: 40 MG
  4. VALSARTAN + HYDROCHLOROTHIAZIDE (VALSARTAN, HYDROCHLOROTHIAZIDE) [Suspect]
     Indication: HYPERTENSION
     Dosage: 160 MG/12.5 MG

REACTIONS (14)
  - BLOOD PRESSURE SYSTOLIC DECREASED [None]
  - BODY TEMPERATURE DECREASED [None]
  - CARDIAC FAILURE [None]
  - COGNITIVE DISORDER [None]
  - DEHYDRATION [None]
  - FLUID INTAKE REDUCED [None]
  - HAEMODIALYSIS [None]
  - HYPOPHAGIA [None]
  - LACTIC ACIDOSIS [None]
  - PAIN [None]
  - RENAL FAILURE [None]
  - SHOCK [None]
  - SOMNOLENCE [None]
  - TOOTH EXTRACTION [None]
